FAERS Safety Report 8381234-0 (Version None)
Quarter: 2012Q2

REPORT INFORMATION
  Report Type: 
  Country: None (occurrence: None)
  Receive Date: 20120523
  Receipt Date: 20120522
  Transmission Date: 20120825
  Serious: No
  Sender: FDA-Public Use
  Company Number: US-PFIZER INC-2012124081

PATIENT
  Sex: Male

DRUGS (2)
  1. LYRICA [Suspect]
     Indication: HYPOAESTHESIA
     Dosage: 75 MG, UNK
     Dates: start: 20120501
  2. LYRICA [Suspect]
     Indication: PARAESTHESIA
     Dosage: UNK

REACTIONS (2)
  - WEIGHT INCREASED [None]
  - CONFUSIONAL STATE [None]
